FAERS Safety Report 8964237 (Version 1)
Quarter: 2012Q4

REPORT INFORMATION
  Report Type: Report from Study
  Country: FR (occurrence: FR)
  Receive Date: 20121214
  Receipt Date: 20121214
  Transmission Date: 20130627
  Serious: Yes (Death, Hospitalization)
  Sender: FDA-Public Use
  Company Number: FR-GILEAD-2012-0066002

PATIENT
  Age: 45 Year
  Sex: Male

DRUGS (11)
  1. EMTRICITABINE/TENOFOVIR DISOPROXIL FUMARATE [Suspect]
     Indication: PRODUCT USED FOR UNKNOWN INDICATION
     Dosage: 1 DF, QOD
     Route: 065
  2. EMTRICITABINE/TENOFOVIR DISOPROXIL FUMARATE [Suspect]
     Dosage: UNK
     Dates: start: 2008, end: 200804
  3. PEGINTERFERON ALFA-2A [Suspect]
     Indication: CHRONIC HEPATITIS C
     Route: 065
  4. SUSTIVA [Suspect]
     Indication: PRODUCT USED FOR UNKNOWN INDICATION
     Dosage: 400 mg, UNK
     Route: 065
     Dates: start: 200601, end: 200701
  5. SUSTIVA [Suspect]
     Dosage: UNK
     Dates: start: 2008, end: 200804
  6. KIVEXA [Concomitant]
     Indication: PRODUCT USED FOR UNKNOWN INDICATION
     Dosage: 1 DF, UNK
     Dates: start: 200510, end: 200701
  7. KIVEXA [Concomitant]
     Dosage: UNK
     Dates: start: 2008, end: 2008
  8. BROMHEXINE [Concomitant]
     Indication: PRODUCT USED FOR UNKNOWN INDICATION
  9. DEXTROMETHORPHAN [Concomitant]
     Indication: PRODUCT USED FOR UNKNOWN INDICATION
  10. DIPHENHYDRAMINE [Concomitant]
     Indication: PRODUCT USED FOR UNKNOWN INDICATION
  11. EPHEDRINE HYDROCHLORIDE [Concomitant]
     Indication: PRODUCT USED FOR UNKNOWN INDICATION

REACTIONS (2)
  - Staphylococcal sepsis [Recovered/Resolved]
  - Respiratory distress [Fatal]
